FAERS Safety Report 8927944 (Version 1)
Quarter: 2012Q4

REPORT INFORMATION
  Report Type: Spontaneous
  Country: US (occurrence: None)
  Receive Date: 20121126
  Receipt Date: 20121126
  Transmission Date: 20130627
  Serious: Yes (Other)
  Sender: FDA-Public Use
  Company Number: None

PATIENT
  Age: 39 Year
  Sex: Female
  Weight: 122.47 kg

DRUGS (3)
  1. AMBIEN [Suspect]
     Indication: PSYCHOTIC REACTION NOS
     Dosage: 10
     Dates: start: 20120814, end: 20120814
  2. AMBIEN [Suspect]
     Indication: INSOMNIA
     Dosage: 10
     Dates: start: 20120814, end: 20120814
  3. BENADRYL [Suspect]

REACTIONS (5)
  - Incoherent [None]
  - Imprisonment [None]
  - Somnolence [None]
  - Poisoning [None]
  - Memory impairment [None]
